FAERS Safety Report 23468030 (Version 1)
Quarter: 2024Q1

REPORT INFORMATION
  Report Type: Spontaneous
  Country: PT (occurrence: PT)
  Receive Date: 20240201
  Receipt Date: 20240201
  Transmission Date: 20240409
  Serious: Yes (Other)
  Sender: FDA-Public Use
  Company Number: PT-BAXTER-2024BAX011721

PATIENT
  Age: 52 Year
  Sex: Female

DRUGS (4)
  1. SEVOFLURANE [Suspect]
     Active Substance: SEVOFLURANE
     Indication: Maintenance of anaesthesia
     Dosage: INHALATION VAPOUR, LIQUID
     Route: 065
  2. LIDOCAINE [Suspect]
     Active Substance: LIDOCAINE
     Indication: Induction of anaesthesia
     Route: 065
  3. PROPOFOL [Suspect]
     Active Substance: PROPOFOL
     Indication: Induction of anaesthesia
     Route: 065
  4. FENTANYL CITRATE [Suspect]
     Active Substance: FENTANYL CITRATE
     Indication: Induction of anaesthesia
     Dosage: SOLUTION FOR INJECTION
     Route: 065

REACTIONS (4)
  - Epistaxis [Unknown]
  - Haemolysis [Unknown]
  - Rectal haemorrhage [Unknown]
  - Urinary bladder haemorrhage [Unknown]
